FAERS Safety Report 9541569 (Version 1)
Quarter: 2013Q3

REPORT INFORMATION
  Report Type: Spontaneous
  Country: US (occurrence: None)
  Receive Date: 20130919
  Receipt Date: 20130919
  Transmission Date: 20140515
  Serious: Yes (Other)
  Sender: FDA-Public Use
  Company Number: None

PATIENT
  Age: 69 Year
  Sex: Male

DRUGS (4)
  1. ERIVEDGE [Suspect]
     Dates: start: 20120820
  2. FUROSEMIDE [Concomitant]
  3. LISINOPRIL [Concomitant]
  4. METOPROLOL [Concomitant]

REACTIONS (1)
  - Liver function test abnormal [None]
